FAERS Safety Report 7059441-9 (Version None)
Quarter: 2010Q4

REPORT INFORMATION
  Report Type: 
  Country: None (occurrence: None)
  Receive Date: 20101025
  Receipt Date: 20101019
  Transmission Date: 20110411
  Serious: Yes (Other)
  Sender: FDA-Public Use
  Company Number: US-JNJFOC-20101005831

PATIENT
  Age: 89 Year
  Sex: Male
  Weight: 62.6 kg

DRUGS (8)
  1. EXTRA STRENGTH TYLENOL [Suspect]
     Route: 048
  2. EXTRA STRENGTH TYLENOL [Suspect]
     Indication: HEADACHE
     Route: 048
  3. SYNTHROID [Concomitant]
     Indication: THYROID DISORDER
     Route: 065
  4. LISINOPRIL [Concomitant]
     Indication: HYPERTENSION
     Dosage: HAS BEEN TAKING FOR A LONG TIME
     Route: 065
  5. METOPROLOL [Concomitant]
     Indication: HYPERTENSION
     Dosage: HAS BEEN TAKING FOR A LONG TIME
     Route: 065
  6. AMLODIPINE [Concomitant]
     Indication: HYPERTENSION
     Dosage: HAS BEEN TAKING FOR A LONG TIME
     Route: 065
  7. OMEPRAZOLE [Concomitant]
     Indication: DYSPEPSIA
     Dosage: HAS BEEN TAKING FOR A LONG TIME
     Route: 065
  8. A MULTIVITAMIN [Concomitant]
     Indication: VITAMIN SUPPLEMENTATION
     Dosage: HAS BEEN TAKING FOR A LONG TIME
     Route: 065

REACTIONS (6)
  - ASTHENIA [None]
  - DEHYDRATION [None]
  - DIARRHOEA [None]
  - NAUSEA [None]
  - PRODUCT ODOUR ABNORMAL [None]
  - VOMITING [None]
